FAERS Safety Report 23920226 (Version 1)
Quarter: 2024Q2

REPORT INFORMATION
  Report Type: Spontaneous
  Country: US (occurrence: None)
  Receive Date: 20240530
  Receipt Date: 20240530
  Transmission Date: 20240716
  Serious: Yes (Hospitalization)
  Sender: FDA-Public Use
  Company Number: None

PATIENT
  Age: 39 Year
  Sex: Male
  Weight: 82.2 kg

DRUGS (3)
  1. CYTARABINE [Suspect]
     Active Substance: CYTARABINE
     Dates: end: 20240525
  2. SPRYCEL [Suspect]
     Active Substance: DASATINIB
     Dates: end: 20240529
  3. METHOTREXATE [Suspect]
     Active Substance: METHOTREXATE
     Dates: end: 20240523

REACTIONS (3)
  - Pyrexia [None]
  - Therapy interrupted [None]
  - Pyelonephritis [None]

NARRATIVE: CASE EVENT DATE: 20240527
